FAERS Safety Report 11031539 (Version 1)
Quarter: 2015Q2

REPORT INFORMATION
  Report Type: Spontaneous
  Country: ES (occurrence: ES)
  Receive Date: 20150415
  Receipt Date: 20150415
  Transmission Date: 20150821
  Serious: Yes (Hospitalization)
  Sender: FDA-Public Use
  Company Number: ES-MYLANLABS-2015M1012548

PATIENT

DRUGS (12)
  1. PRIMPERAN [Suspect]
     Active Substance: METOCLOPRAMIDE HYDROCHLORIDE
     Dosage: 5 MG (1-1-1)
     Route: 048
  2. CICLOFALINA [Concomitant]
     Active Substance: PIRACETAM
     Dosage: 800 MG (0-0-1)
     Route: 048
  3. CLEXANE [Concomitant]
     Active Substance: ENOXAPARIN SODIUM
     Dosage: 40 MG (0-1-0)
     Route: 058
  4. QUETIAPINE [Suspect]
     Active Substance: QUETIAPINE
     Dosage: 25 MG (0-0-1)
     Route: 048
     Dates: start: 20140618
  5. POTASION [Concomitant]
     Active Substance: POTASSIUM CHLORIDE
     Dosage: 600 MG (0-2-0)
     Route: 048
  6. MEROPENEM. [Concomitant]
     Active Substance: MEROPENEM
     Dosage: 500 MG (0-1-0)
     Route: 042
  7. PREDNISONE. [Suspect]
     Active Substance: PREDNISONE
     Dosage: 5 MG (1-0-0)
     Route: 048
  8. SEGURIL [Suspect]
     Active Substance: FUROSEMIDE
     Dosage: 20 MG (1-0-0)
     Route: 042
  9. FLUMIL                             /00082801/ [Concomitant]
     Dosage: 200 MG (1-1-1)
     Route: 048
  10. LINEZOLID. [Suspect]
     Active Substance: LINEZOLID
     Dosage: 600 MG (1-0-1)
     Route: 042
  11. OMEPRAZOLE. [Suspect]
     Active Substance: OMEPRAZOLE
     Dosage: 20 MG (1-0-0)
     Route: 048
  12. MIANSERIN [Suspect]
     Active Substance: MIANSERIN
     Dosage: 10 MG (0-0-1/2)
     Route: 048
     Dates: start: 20140618

REACTIONS (11)
  - Depressed level of consciousness [Recovered/Resolved]
  - Aspiration [Unknown]
  - Sedation [Unknown]
  - Respiratory distress [Recovering/Resolving]
  - Fatigue [Unknown]
  - Tremor [Unknown]
  - Nausea [Unknown]
  - Confusional state [Unknown]
  - Palpitations [Unknown]
  - Poor quality sleep [Unknown]
  - Depression [Unknown]
